FAERS Safety Report 20524008 (Version 2)
Quarter: 2022Q1

REPORT INFORMATION
  Report Type: Spontaneous
  Country: US (occurrence: US)
  Receive Date: 20220228
  Receipt Date: 20220307
  Transmission Date: 20220423
  Serious: No
  Sender: FDA-Public Use
  Company Number: US-AMGEN-USASP2022032053

PATIENT
  Age: 65 Year
  Sex: Female

DRUGS (2)
  1. OTEZLA [Suspect]
     Active Substance: APREMILAST
     Indication: Psoriasis
     Dosage: 30 MILLIGRAM, BID
     Route: 065
     Dates: start: 202202
  2. ANTIBIOTIC [BACITRACIN;POLYMYXIN B SULFATE] [Concomitant]
     Dosage: UNK, UNK
     Route: 065

REACTIONS (5)
  - Dermatitis atopic [Not Recovered/Not Resolved]
  - Asthenia [Unknown]
  - Decreased appetite [Not Recovered/Not Resolved]
  - Weight decreased [Unknown]
  - Fatigue [Unknown]

NARRATIVE: CASE EVENT DATE: 20220201
